FAERS Safety Report 15877840 (Version 3)
Quarter: 2019Q2

REPORT INFORMATION
  Report Type: Report from Study
  Country: DE (occurrence: DE)
  Receive Date: 20190128
  Receipt Date: 20190412
  Transmission Date: 20190711
  Serious: Yes (Hospitalization)
  Sender: FDA-Public Use
  Company Number: DE-ROCHE-2250744

PATIENT
  Age: 74 Year
  Sex: Female
  Weight: 65 kg

DRUGS (12)
  1. OCRELIZUMAB. [Suspect]
     Active Substance: OCRELIZUMAB
     Indication: MULTIPLE SCLEROSIS
     Dosage: 2 INTERVAL
     Route: 042
     Dates: start: 20180530
  2. LIORESAL [Concomitant]
     Active Substance: BACLOFEN
     Route: 048
  3. IBUHEXAL [Concomitant]
     Active Substance: IBUPROFEN
     Route: 048
  4. GABAPENTIN. [Concomitant]
     Active Substance: GABAPENTIN
     Route: 048
  5. DEKRISTOL [Concomitant]
     Active Substance: CHOLECALCIFEROL
     Indication: VITAMIN D DEFICIENCY
     Route: 048
  6. OCRELIZUMAB. [Suspect]
     Active Substance: OCRELIZUMAB
     Route: 042
     Dates: start: 20180613
  7. OCRELIZUMAB. [Suspect]
     Active Substance: OCRELIZUMAB
     Route: 042
     Dates: start: 20181130
  8. SIMVAHEXAL [Concomitant]
     Active Substance: SIMVASTATIN
     Route: 048
  9. TOLTERODIN [Concomitant]
     Active Substance: TOLTERODINE TARTRATE
     Route: 048
  10. ACETYLSALICYLIC ACID [Concomitant]
     Active Substance: ASPIRIN
     Indication: PROPHYLAXIS
     Route: 048
  11. LACTULOSE. [Concomitant]
     Active Substance: LACTULOSE
     Indication: CONSTIPATION
     Route: 048
  12. FAMPYRA [Concomitant]
     Active Substance: DALFAMPRIDINE
     Route: 048

REACTIONS (4)
  - Fall [Unknown]
  - Rib fracture [Recovered/Resolved]
  - Gait disturbance [Unknown]
  - Fatigue [Recovered/Resolved]

NARRATIVE: CASE EVENT DATE: 20181008
